FAERS Safety Report 4915156-1 (Version None)
Quarter: 2006Q1

REPORT INFORMATION
  Report Type: 
  Country: None (occurrence: None)
  Receive Date: 20060216
  Receipt Date: 20060216
  Transmission Date: 20060701
  Serious: Yes (Hospitalization)
  Sender: FDA-Public Use
  Company Number: None

PATIENT
  Sex: Female
  Weight: 62.5964 kg

DRUGS (2)
  1. AVELOX [Suspect]
     Indication: CYSTITIS
     Dosage: PRIOR TO ADMISSION
     Route: 065
  2. CETAPHIL [Suspect]
     Dosage: TOPICAL - PRIOR TO ADMISSION
     Route: 061

REACTIONS (2)
  - PRURITUS [None]
  - RASH [None]
